FAERS Safety Report 9147452 (Version 2)
Quarter: 2013Q2

REPORT INFORMATION
  Report Type: Spontaneous
  Country: FR (occurrence: FR)
  Receive Date: 20130307
  Receipt Date: 20130409
  Transmission Date: 20140414
  Serious: Yes (Hospitalization)
  Sender: FDA-Public Use
  Company Number: FR-JNJFOC-20130216947

PATIENT
  Age: 50 Year
  Sex: Female

DRUGS (11)
  1. PREZISTA [Suspect]
     Indication: HIV INFECTION
     Route: 048
     Dates: start: 20130217
  2. PREZISTA [Suspect]
     Indication: HIV INFECTION
     Route: 048
     Dates: start: 20130208, end: 20130211
  3. FOSCAVIR [Suspect]
     Indication: HIV INFECTION
     Dosage: INITIATED ON AN UNSPECIFIED DATE, DURING 3 WEEKS
     Route: 042
     Dates: start: 20130118, end: 20130209
  4. FOSCAVIR [Suspect]
     Indication: HIV INFECTION
     Route: 042
     Dates: start: 20130220
  5. INVIRASE [Suspect]
     Indication: HIV INFECTION
     Route: 048
     Dates: start: 20130208, end: 20130211
  6. INVIRASE [Suspect]
     Indication: HIV INFECTION
     Route: 048
     Dates: start: 20130220
  7. NORVIR [Suspect]
     Indication: HIV INFECTION
     Route: 048
     Dates: start: 20130220
  8. NORVIR [Suspect]
     Indication: HIV INFECTION
     Route: 048
     Dates: start: 20130208, end: 20130211
  9. DOLUTEGRAVIR [Suspect]
     Indication: HIV INFECTION
     Route: 048
     Dates: start: 20130208, end: 20130211
  10. DOLUTEGRAVIR [Suspect]
     Indication: HIV INFECTION
     Route: 048
     Dates: start: 20130220
  11. RETROVIR [Suspect]
     Indication: HIV INFECTION
     Route: 065

REACTIONS (1)
  - Renal failure acute [Recovered/Resolved]
